FAERS Safety Report 10712717 (Version 1)
Quarter: 2015Q1

REPORT INFORMATION
  Report Type: Spontaneous
  Country: CA (occurrence: CA)
  Receive Date: 20150115
  Receipt Date: 20150115
  Transmission Date: 20150721
  Serious: Yes (Other)
  Sender: FDA-Public Use
  Company Number: CA-ROCHE-1520617

PATIENT
  Age: 30 Year
  Sex: Female

DRUGS (2)
  1. METALYSE [Suspect]
     Active Substance: TENECTEPLASE
     Indication: PULMONARY EMBOLISM
     Route: 065
  2. HEPARIN [Suspect]
     Active Substance: HEPARIN SODIUM
     Indication: PRODUCT USED FOR UNKNOWN INDICATION
     Dosage: DAILY DOSE: 30000 U
     Route: 042

REACTIONS (10)
  - Incision site haemorrhage [Recovered/Resolved]
  - Abdominal compartment syndrome [Recovered/Resolved]
  - Generalised oedema [Recovered/Resolved]
  - Compartment syndrome [Recovered/Resolved]
  - Pericardial haemorrhage [Recovered/Resolved]
  - Intra-abdominal haemorrhage [Recovered/Resolved]
  - Disseminated intravascular coagulation [Recovered/Resolved]
  - Peritoneal haemorrhage [Recovered/Resolved]
  - Pulmonary embolism [Recovered/Resolved]
  - Mediastinal haemorrhage [Recovered/Resolved]
